FAERS Safety Report 17819340 (Version 1)
Quarter: 2020Q2

REPORT INFORMATION
  Report Type: Spontaneous
  Country: US (occurrence: US)
  Receive Date: 20200523
  Receipt Date: 20200523
  Transmission Date: 20200714
  Serious: Yes (Hospitalization, Other)
  Sender: FDA-Public Use
  Company Number: US-VISTAPHARM, INC.-VER202005-000952

PATIENT
  Weight: 3.8 kg

DRUGS (3)
  1. METHADONE [Suspect]
     Active Substance: METHADONE HYDROCHLORIDE
     Dosage: UNKNOWN
     Route: 064
  2. GABAPENTIN. [Suspect]
     Active Substance: GABAPENTIN
     Dosage: UNKNOWN
     Route: 064
  3. HEROIN [Suspect]
     Active Substance: DIAMORPHINE
     Dosage: UNKNOWN
     Route: 064

REACTIONS (3)
  - Foetal exposure during pregnancy [Unknown]
  - Necrotising colitis [Unknown]
  - Drug withdrawal syndrome neonatal [Unknown]
